FAERS Safety Report 21401722 (Version 1)
Quarter: 2022Q3

REPORT INFORMATION
  Report Type: Spontaneous
  Country: US (occurrence: None)
  Receive Date: 20220930
  Receipt Date: 20220930
  Transmission Date: 20221027
  Serious: Yes (Hospitalization)
  Sender: FDA-Public Use
  Company Number: None

PATIENT
  Age: 69 Year
  Sex: Female

DRUGS (2)
  1. TACROLIMUS [Suspect]
     Active Substance: TACROLIMUS
     Indication: Lung transplant
     Dosage: TAKE 1 CAPSULE BY MOUTH TWICE DAILY. TAKE AS INSTRUCTED BY LUNG TRANSPLANT TEAM.
     Route: 048
     Dates: start: 20220122
  2. TACROLIMUS [Suspect]
     Active Substance: TACROLIMUS
     Dosage: FREQUENCY : AS DIRECTED;?
     Route: 048

REACTIONS (2)
  - Lung transplant rejection [None]
  - Chest pain [None]

NARRATIVE: CASE EVENT DATE: 20220912
